FAERS Safety Report 6170068-3 (Version None)
Quarter: 2009Q2

REPORT INFORMATION
  Report Type: 
  Country: None (occurrence: None)
  Receive Date: 20090428
  Receipt Date: 20090420
  Transmission Date: 20091009
  Serious: Yes (Other)
  Sender: FDA-Public Use
  Company Number: A0773900A

PATIENT
  Age: 33 Year
  Sex: Female
  Weight: 68.2 kg

DRUGS (1)
  1. LAMICTAL [Suspect]
     Indication: BIPOLAR II DISORDER
     Route: 048
     Dates: start: 20090127, end: 20090209

REACTIONS (2)
  - LEUKOPENIA [None]
  - LYMPHADENOPATHY [None]
